FAERS Safety Report 5272589-4 (Version None)
Quarter: 2007Q1

REPORT INFORMATION
  Report Type: 
  Country: None (occurrence: None)
  Receive Date: 20070322
  Receipt Date: 20070314
  Transmission Date: 20070707
  Serious: Yes (Death, Other)
  Sender: FDA-Public Use
  Company Number: PHNU2007SI01197

PATIENT
  Age: 33 Year
  Sex: Female
  Weight: 62 kg

DRUGS (1)
  1. GLEEVEC [Suspect]
     Indication: GASTROINTESTINAL STROMAL TUMOUR
     Dosage: 400 MG, QD
     Route: 048
     Dates: start: 20060414, end: 20060802

REACTIONS (14)
  - ALANINE AMINOTRANSFERASE INCREASED [None]
  - ASPARTATE AMINOTRANSFERASE INCREASED [None]
  - BLOOD BILIRUBIN INCREASED [None]
  - CHEST X-RAY ABNORMAL [None]
  - COMPUTERISED TOMOGRAM ABNORMAL [None]
  - CONFUSIONAL STATE [None]
  - COUGH [None]
  - DEATH [None]
  - GAMMA-GLUTAMYLTRANSFERASE INCREASED [None]
  - HEPATOTOXICITY [None]
  - JAUNDICE [None]
  - LUNG INFILTRATION [None]
  - OEDEMA [None]
  - PULMONARY TOXICITY [None]
